FAERS Safety Report 6933894-6 (Version None)
Quarter: 2010Q3

REPORT INFORMATION
  Report Type: 
  Country: None (occurrence: None)
  Receive Date: 20100820
  Receipt Date: 20100810
  Transmission Date: 20110219
  Serious: Yes (Hospitalization, Disabling)
  Sender: FDA-Public Use
  Company Number: DE-ROCHE-720162

PATIENT
  Sex: Female
  Weight: 58 kg

DRUGS (5)
  1. TRASTUZUMAB [Suspect]
     Indication: BREAST CANCER
     Dosage: ROUTE OF ADMIN: INTRAVENOUS (NOT OTHERWISE SPECIFIED). LAST DOSE PRIOR TO SAE: 06 JULY 2010
     Route: 042
     Dates: start: 20100525, end: 20100804
  2. DOCETAXEL [Suspect]
     Indication: BREAST CANCER
     Dosage: DAILY DOSE: UNK (80 MG). LAST DOSE PRIOR TO SAE: 06 JULY 2010
     Route: 042
     Dates: start: 20100525, end: 20100804
  3. DOXORUBICIN HCL [Suspect]
     Indication: PRODUCT USED FOR UNKNOWN INDICATION
     Dosage: ROUTE: INTRAVENOUS NOT OTHERWISE SPECIFIED. DOXORUBICINE (50 MG). LAST DOSE: 04 MAY 2010.
     Route: 042
     Dates: start: 20100301
  4. CYCLOPHOSPHAMIDE [Suspect]
     Indication: PRODUCT USED FOR UNKNOWN INDICATION
     Dosage: CYCLOPHOSPHOMIDE (100 MG), ROUTE : INTRAVENOUS NOT OTHERWISE SPECIFIED. LAST DOSE: 04 MAY 2010
     Route: 042
     Dates: start: 20100301, end: 20100504
  5. FUROSEMIDE [Concomitant]
     Dosage: UNK (40 MG)
     Route: 048
     Dates: start: 20100720

REACTIONS (1)
  - CAPILLARY LEAK SYNDROME [None]
